FAERS Safety Report 7325415-3 (Version None)
Quarter: 2011Q1

REPORT INFORMATION
  Report Type: 
  Country: None (occurrence: None)
  Receive Date: 20110302
  Receipt Date: 20110218
  Transmission Date: 20110831
  Serious: Yes (Hospitalization, Other)
  Sender: FDA-Public Use
  Company Number: US-ELI_LILLY_AND_COMPANY-US200908005336

PATIENT
  Sex: Female

DRUGS (33)
  1. FORTEO [Suspect]
     Indication: OSTEOPOROSIS POSTMENOPAUSAL
     Dosage: 20 UG, DAILY (1/D)
  2. NITROGLYCERIN [Concomitant]
  3. METHOTREXATE [Concomitant]
  4. SIMVASTATIN [Concomitant]
  5. CHLORIDE [Concomitant]
  6. MULTI-VITAMIN [Concomitant]
  7. CALCIUM WITH VITAMIN D [Concomitant]
  8. FORTEO [Interacting]
     Dosage: 20 UG, DAILY (1/D)
  9. SKELAXIN [Interacting]
     Indication: SURGERY
     Dosage: 400 MG, DAILY (1/D)
     Dates: start: 20090201, end: 20090801
  10. VITAMIN D [Concomitant]
  11. RANITIDINE [Concomitant]
  12. OXYBUTYNIN [Concomitant]
  13. WARFARIN [Concomitant]
  14. FORTEO [Interacting]
     Dosage: 20 UG, DAILY (1/D)
     Route: 065
  15. MINERAL OIL EMULSION [Concomitant]
     Indication: CONSTIPATION
  16. NEURONTIN [Concomitant]
     Indication: ARTHRALGIA
  17. OXYCONTIN [Concomitant]
     Indication: ARTHRALGIA
  18. FOLIC ACID [Concomitant]
  19. TIOTROPIUM [Concomitant]
  20. FORTEO [Interacting]
     Dosage: 20 UG, DAILY (1/D)
  21. PREDNISONE [Concomitant]
  22. FORTEO [Interacting]
     Dosage: 20 UG, DAILY (1/D)
  23. FORTEO [Interacting]
     Dosage: 20 UG, DAILY (1/D)
  24. FORTEO [Interacting]
     Dosage: 20 UG, DAILY (1/D)
  25. FORTEO [Interacting]
     Dosage: 20 UG, DAILY (1/D)
  26. MUSCLE RELAXANTS [Concomitant]
     Dates: start: 20090201
  27. POTASSIUM [Concomitant]
  28. LEVOXYL [Concomitant]
  29. FORTEO [Interacting]
     Dosage: 20 UG, DAILY (1/D)
  30. VITAMIN D [Concomitant]
     Route: 065
  31. FUROSEMIDE [Concomitant]
  32. METOPROLOL [Concomitant]
  33. CELEXA [Concomitant]

REACTIONS (36)
  - BACK PAIN [None]
  - FALL [None]
  - CONFUSIONAL STATE [None]
  - DISCOMFORT [None]
  - STAPHYLOCOCCAL INFECTION [None]
  - STOMATITIS [None]
  - NECK PAIN [None]
  - THROMBOSIS [None]
  - JOINT INJURY [None]
  - LIMB INJURY [None]
  - INFECTED CYST [None]
  - SECRETION DISCHARGE [None]
  - PRODUCTIVE COUGH [None]
  - SCREAMING [None]
  - HEADACHE [None]
  - MUSCLE SPASMS [None]
  - SURGERY [None]
  - RESPIRATORY RATE DECREASED [None]
  - MUSCULAR WEAKNESS [None]
  - ADVERSE DRUG REACTION [None]
  - MUSCLE TIGHTNESS [None]
  - DERMAL CYST [None]
  - INJECTION SITE PAIN [None]
  - BLOOD PRESSURE DECREASED [None]
  - DYSKINESIA [None]
  - DYSPHONIA [None]
  - PAIN [None]
  - INJECTION SITE ERYTHEMA [None]
  - NASOPHARYNGITIS [None]
  - DRUG INTERACTION [None]
  - CONTUSION [None]
  - LYMPH NODE PAIN [None]
  - VITAMIN D DECREASED [None]
  - MYOCARDIAL INFARCTION [None]
  - ABNORMAL BEHAVIOUR [None]
  - CONSTIPATION [None]
